FAERS Safety Report 20828175 (Version 1)
Quarter: 2022Q2

REPORT INFORMATION
  Report Type: Spontaneous
  Country: US (occurrence: US)
  Receive Date: 20220513
  Receipt Date: 20220513
  Transmission Date: 20220721
  Serious: No
  Sender: FDA-Public Use
  Company Number: US-SA-SAC20220506000041

PATIENT
  Age: 68 Year
  Sex: Male

DRUGS (6)
  1. DUPIXENT [Suspect]
     Active Substance: DUPILUMAB
     Indication: Dermatitis atopic
     Dosage: 300 MG, QOW
     Route: 058
     Dates: start: 20210524
  2. VITAMIN C [Concomitant]
     Active Substance: ASCORBIC ACID
     Dosage: 1000 MG
  3. ZINC 220 [Concomitant]
     Dosage: 50 MG
  4. VITAMIN D3 [Concomitant]
     Active Substance: CHOLECALCIFEROL
     Dosage: 10 UG
  5. CINNAMON [CINNAMOMUM VERUM] [Concomitant]
  6. COVID-19 VACCINE [Concomitant]
     Indication: Immunisation

REACTIONS (3)
  - Eye disorder [Unknown]
  - Pruritus [Unknown]
  - Product dose omission issue [Unknown]
